FAERS Safety Report 5846728-8 (Version None)
Quarter: 2008Q3

REPORT INFORMATION
  Report Type: 
  Country: None (occurrence: None)
  Receive Date: 20080814
  Receipt Date: 20080806
  Transmission Date: 20090109
  Serious: Yes (Death, Hospitalization)
  Sender: FDA-Public Use
  Company Number: APP200800726

PATIENT
  Age: 61 Year
  Sex: Male
  Weight: 88.905 kg

DRUGS (15)
  1. HEPARIN SODIUM INJECTION [Suspect]
     Indication: ANTICOAGULANT THERAPY
     Dosage: 3000 USP UNITS, ONCE, INTRAVENOUS (NOT OTHERWISE SPECIFIED)
     Route: 042
     Dates: start: 20080730, end: 20080730
  2. VENOFER [Concomitant]
  3. ZEMPLAR [Concomitant]
  4. CLONIDINE [Concomitant]
  5. DIPHENHYDRAMINE HCL [Concomitant]
  6. HYDRALAZINE HCL [Concomitant]
  7. METOCLOPRAMIDE [Concomitant]
  8. MINOXIDIL [Concomitant]
  9. VALSARTAN [Concomitant]
  10. TEKTURA (DEXAMETHASONE) [Concomitant]
  11. PHENYTOIN [Concomitant]
  12. CLOPIDOGREL [Concomitant]
  13. RENAGEL [Concomitant]
  14. METOPROLOL TARTRATE [Concomitant]
  15. AMOXICILLIN/CLAVULANATE (SPEKTRAMOX/02043401/) [Concomitant]

REACTIONS (8)
  - DIARRHOEA [None]
  - DISSEMINATED INTRAVASCULAR COAGULATION [None]
  - HAEMATOCRIT DECREASED [None]
  - HAEMOGLOBIN DECREASED [None]
  - HAEMOLYSIS [None]
  - RASH [None]
  - RESPIRATORY FAILURE [None]
  - SEPSIS [None]
